FAERS Safety Report 10954722 (Version 1)
Quarter: 2015Q1

REPORT INFORMATION
  Report Type: Report from Study
  Country: JP (occurrence: JP)
  Receive Date: 20150325
  Receipt Date: 20150325
  Transmission Date: 20150721
  Serious: Yes (Other)
  Sender: FDA-Public Use
  Company Number: JP-PFIZER INC-2015102463

PATIENT
  Age: 80 Year
  Sex: Female

DRUGS (6)
  1. DISOPYRAMIDE PHOSPHATE. [Suspect]
     Active Substance: DISOPYRAMIDE PHOSPHATE
     Indication: ATRIAL FIBRILLATION
     Dosage: 200 MG, UNK
  2. DISOPYRAMIDE PHOSPHATE. [Interacting]
     Active Substance: DISOPYRAMIDE PHOSPHATE
     Indication: HYPERTENSION
  3. PILSICAINIDE [Interacting]
     Active Substance: PILSICAINIDE
     Indication: ATRIAL FIBRILLATION
     Dosage: 100 MG, UNK
  4. PILSICAINIDE [Interacting]
     Active Substance: PILSICAINIDE
     Indication: HYPERTENSION
  5. BETAXOLOL [Interacting]
     Active Substance: BETAXOLOL
     Indication: HYPERTENSION
     Dosage: 5 MG, UNK
  6. BETAXOLOL [Interacting]
     Active Substance: BETAXOLOL
     Indication: ATRIAL FIBRILLATION

REACTIONS (4)
  - Rhythm idioventricular [Recovered/Resolved]
  - Sinus arrest [Recovered/Resolved]
  - Sinus bradycardia [Recovered/Resolved]
  - Drug interaction [Recovered/Resolved]
